FAERS Safety Report 6911105-5 (Version None)
Quarter: 2010Q3

REPORT INFORMATION
  Report Type: 
  Country: None (occurrence: None)
  Receive Date: 20100806
  Receipt Date: 20100804
  Transmission Date: 20110219
  Serious: Yes (Other)
  Sender: FDA-Public Use
  Company Number: US-CVT-100469

PATIENT

DRUGS (26)
  1. RANEXA [Suspect]
     Indication: ANGINA PECTORIS
     Dosage: 500 MG, BID
     Route: 048
  2. DIOVAN /01319601/ [Concomitant]
  3. CARVEDILOL [Concomitant]
  4. TOPROL-XL [Concomitant]
  5. FUROSEMIDE                         /00032601/ [Concomitant]
  6. LEXAPRO [Concomitant]
  7. ASPIRIN [Concomitant]
  8. LANTUS [Concomitant]
  9. ACTOS [Concomitant]
  10. GABAPENTIN [Concomitant]
  11. OXYGEN [Concomitant]
  12. LEVOTHYROXINE                      /00068001/ [Concomitant]
  13. CLONAZEPAM [Concomitant]
  14. HYDROCODONE BITARTRATE [Concomitant]
  15. EPIPEN                             /00003901/ [Concomitant]
  16. FLUCONAZOLE [Concomitant]
  17. PROMETHAZINE [Concomitant]
  18. TRAVATAN Z [Concomitant]
  19. METAMUCIL /00091301/ [Concomitant]
  20. FOLIC ACID [Concomitant]
  21. VITAMIN B COMPLEX CAP [Concomitant]
  22. ASCORBIC ACID [Concomitant]
  23. VITAMIN D [Concomitant]
  24. FISH OIL [Concomitant]
  25. MV [Concomitant]
  26. ACIDOPHILUS [Concomitant]

REACTIONS (6)
  - DIARRHOEA [None]
  - DYSKINESIA [None]
  - HALLUCINATION [None]
  - NAUSEA [None]
  - NIGHTMARE [None]
  - VOMITING [None]
